FAERS Safety Report 4769038-9 (Version None)
Quarter: 2005Q3

REPORT INFORMATION
  Report Type: 
  Country: None (occurrence: None)
  Receive Date: 20050913
  Receipt Date: 20050901
  Transmission Date: 20060218
  Serious: Yes (Life-Threatening)
  Sender: FDA-Public Use
  Company Number: HQWYE427529SEP04

PATIENT
  Age: 36 Year
  Sex: Male

DRUGS (6)
  1. PANTOZOL (PANTOPRAZOLE, TABLET, DELAYED RELEASE) [Suspect]
     Indication: DUODENITIS
  2. PANTOZOL (PANTOPRAZOLE, TABLET, DELAYED RELEASE) [Suspect]
     Indication: GASTRITIS
  3. AMOXICILLIN [Suspect]
     Indication: DUODENITIS
  4. AMOXICILLIN [Suspect]
     Indication: GASTRITIS
  5. CLARITHROMYCIN [Suspect]
     Indication: DUODENITIS
  6. CLARITHROMYCIN [Suspect]
     Indication: GASTRITIS

REACTIONS (3)
  - ARRHYTHMIA [None]
  - CARDIAC ARREST [None]
  - VENTRICULAR FIBRILLATION [None]
